FAERS Safety Report 19914064 (Version 1)
Quarter: 2021Q4

REPORT INFORMATION
  Report Type: Other
  Country: US (occurrence: US)
  Receive Date: 20211005
  Receipt Date: 20211005
  Transmission Date: 20220303
  Serious: Yes (Other)
  Sender: FDA-Public Use
  Company Number: US-ROCHE-2903182

PATIENT
  Sex: Male
  Weight: 64.92 kg

DRUGS (2)
  1. ESBRIET [Suspect]
     Active Substance: PIRFENIDONE
     Indication: Idiopathic pulmonary fibrosis
     Dosage: 6 PILLS PER DAY ;ONGOING: YES
     Route: 048
     Dates: start: 202105
  2. ESBRIET [Suspect]
     Active Substance: PIRFENIDONE
     Route: 048

REACTIONS (3)
  - Nausea [Recovered/Resolved]
  - Rash macular [Recovering/Resolving]
  - Neoplasm malignant [Unknown]
